FAERS Safety Report 6187520-7 (Version None)
Quarter: 2009Q2

REPORT INFORMATION
  Report Type: 
  Country: None (occurrence: None)
  Receive Date: 20090508
  Receipt Date: 20090423
  Transmission Date: 20091009
  Serious: Yes (Other)
  Sender: FDA-Public Use
  Company Number: IDA-00196

PATIENT
  Age: 77 Year
  Sex: Female

DRUGS (2)
  1. INDERAL [Suspect]
     Dosage: 20 MG BID
  2. RABEPRAZOLE SODIUM [Suspect]

REACTIONS (3)
  - PANCYTOPENIA [None]
  - PLATELET COUNT DECREASED [None]
  - WHITE BLOOD CELL COUNT DECREASED [None]
